FAERS Safety Report 13721656 (Version 1)
Quarter: 2017Q3

REPORT INFORMATION
  Report Type: Spontaneous
  Country: US (occurrence: US)
  Receive Date: 20170706
  Receipt Date: 20170706
  Transmission Date: 20171127
  Serious: Yes (Hospitalization)
  Sender: FDA-Public Use
  Company Number: None

PATIENT
  Age: 59 Year
  Sex: Female

DRUGS (8)
  1. IBRANCE [Suspect]
     Active Substance: PALBOCICLIB
     Indication: METASTATIC NEOPLASM
     Route: 048
     Dates: start: 20160803
  2. FLUTICASONE. [Concomitant]
     Active Substance: FLUTICASONE
  3. NYSTATIN. [Concomitant]
     Active Substance: NYSTATIN
  4. SYMBICORT [Concomitant]
     Active Substance: BUDESONIDE\FORMOTEROL FUMARATE DIHYDRATE
  5. LETROZOLE. [Concomitant]
     Active Substance: LETROZOLE
  6. ELIQUIS [Concomitant]
     Active Substance: APIXABAN
  7. VENTOLIN [Concomitant]
     Active Substance: ALBUTEROL SULFATE
  8. XANAX [Concomitant]
     Active Substance: ALPRAZOLAM

REACTIONS (8)
  - Decreased appetite [None]
  - Fatigue [None]
  - Neuropathy peripheral [None]
  - Infection [None]
  - Nausea [None]
  - Constipation [None]
  - Headache [None]
  - Diarrhoea [None]

NARRATIVE: CASE EVENT DATE: 20170704
